FAERS Safety Report 12124137 (Version 1)
Quarter: 2016Q1

REPORT INFORMATION
  Report Type: Spontaneous
  Country: US (occurrence: US)
  Receive Date: 20160228
  Receipt Date: 20160228
  Transmission Date: 20160526
  Serious: No
  Sender: FDA-Public Use
  Company Number: US-BIOGEN-2016BI00191441

PATIENT
  Age: 50 Year
  Sex: Female

DRUGS (1)
  1. AVONEX [Suspect]
     Active Substance: INTERFERON BETA-1A
     Indication: MULTIPLE SCLEROSIS
     Route: 030
     Dates: start: 20060922

REACTIONS (4)
  - Exposure via direct contact [Recovered/Resolved]
  - Intentional product misuse [Unknown]
  - Injection site induration [Unknown]
  - Procedural anxiety [Unknown]

NARRATIVE: CASE EVENT DATE: 20160212
